FAERS Safety Report 5515775-8 (Version None)
Quarter: 2007Q4

REPORT INFORMATION
  Report Type: 
  Country: None (occurrence: None)
  Receive Date: 20071109
  Receipt Date: 20071026
  Transmission Date: 20080405
  Serious: Yes (Hospitalization)
  Sender: FDA-Public Use
  Company Number: GXKR2007PL09274

PATIENT
  Age: 50 Year
  Sex: Male
  Weight: 100 kg

DRUGS (7)
  1. KETOPROFEN [Suspect]
     Indication: ARTHRALGIA
     Dosage: ORAL
     Route: 048
     Dates: end: 20070813
  2. DICLOFENAC (NGX)(DICLOFENAC) UNKNOWN [Suspect]
     Indication: GOUT
     Dosage: ORAL
     Route: 048
     Dates: end: 20070813
  3. DICLOFENAC SODIUM [Suspect]
     Dosage: ORAL
     Route: 048
     Dates: end: 20070813
  4. AULIN ^MEDICOM^(NIMESULIDE) [Suspect]
     Dates: end: 20070813
  5. KETOPROFEN [Suspect]
     Dosage: ORAL
     Route: 048
     Dates: end: 20070813
  6. TRITACE (RAMIPRIL) UNKNOWN [Concomitant]
  7. HYGROTON (CHLORTALIDONE) UNKNOWN [Concomitant]

REACTIONS (7)
  - BLOOD CREATININE INCREASED [None]
  - BLOOD UREA INCREASED [None]
  - GLUCOSE URINE PRESENT [None]
  - NAUSEA [None]
  - URINARY CASTS [None]
  - URINE KETONE BODY PRESENT [None]
  - VOMITING [None]
